FAERS Safety Report 8809509 (Version 1)
Quarter: 2012Q4

REPORT INFORMATION
  Report Type: 
  Country: US (occurrence: US)
  Receive Date: 20120926
  Receipt Date: 20120926
  Transmission Date: 20130627
  Serious: Yes (Death, Other)
  Sender: FDA-Public Use
  Company Number: US-ROCHE-CID000000002101451

PATIENT
  Sex: Male

DRUGS (6)
  1. AVASTIN [Suspect]
     Indication: PANCREATIC CARCINOMA
     Route: 065
     Dates: start: 200411
  2. TARCEVA [Suspect]
     Indication: PANCREATIC CARCINOMA
     Route: 065
     Dates: end: 200503
  3. 5-FLUOROURACIL [Concomitant]
  4. TAXOTERE [Concomitant]
     Route: 065
     Dates: end: 200503
  5. GEMZAR [Concomitant]
  6. DECADRON [Concomitant]

REACTIONS (4)
  - Death [Fatal]
  - Metastases to liver [Unknown]
  - Metastases to lung [Unknown]
  - Proctitis [Unknown]
